FAERS Safety Report 9036353 (Version 1)
Quarter: 2013Q1

REPORT INFORMATION
  Report Type: Spontaneous
  Country: US (occurrence: None)
  Receive Date: 20130117
  Receipt Date: 20130117
  Transmission Date: 20140127
  Serious: Yes (Other)
  Sender: FDA-Public Use
  Company Number: None

PATIENT
  Age: 69 Year
  Sex: Male
  Weight: 95.26 kg

DRUGS (1)
  1. HYDROCO/APAP [Suspect]
     Dosage: 1 TAB, TWO DAILY
     Dates: start: 20120123, end: 20120430

REACTIONS (3)
  - Product quality issue [None]
  - Drug ineffective [None]
  - Intervertebral disc protrusion [None]
